FAERS Safety Report 13104412 (Version 1)
Quarter: 2017Q1

REPORT INFORMATION
  Report Type: Report from Study
  Country: CA (occurrence: CA)
  Receive Date: 20170111
  Receipt Date: 20170111
  Transmission Date: 20170428
  Serious: Yes (Other)
  Sender: FDA-Public Use
  Company Number: CA-AMGEN-CANSL2017002511

PATIENT
  Sex: Male

DRUGS (1)
  1. XGEVA [Suspect]
     Active Substance: DENOSUMAB
     Indication: PROSTATE CANCER
     Dosage: 120 MG/ 1.7 ML, UNK
     Route: 065
     Dates: start: 20120202

REACTIONS (3)
  - Palliative care [Not Recovered/Not Resolved]
  - Abasia [Not Recovered/Not Resolved]
  - General physical health deterioration [Not Recovered/Not Resolved]
